FAERS Safety Report 20807101 (Version 2)
Quarter: 2022Q2

REPORT INFORMATION
  Report Type: Report from Study
  Country: US (occurrence: US)
  Receive Date: 20220510
  Receipt Date: 20220520
  Transmission Date: 20220721
  Serious: Yes (Other)
  Sender: FDA-Public Use
  Company Number: US-INSMED, INC.-2022-01165-US

PATIENT
  Age: 73 Year
  Sex: Male

DRUGS (2)
  1. ARIKAYCE [Suspect]
     Active Substance: AMIKACIN
     Indication: Mycobacterium avium complex infection
     Dosage: 590 MILLIGRAM, QD
     Route: 055
     Dates: start: 2022, end: 202204
  2. ARIKAYCE [Suspect]
     Active Substance: AMIKACIN
     Indication: Dyspnoea
     Dosage: 590 MILLIGRAM, TIW
     Route: 055
     Dates: start: 20220404

REACTIONS (2)
  - Emphysema [Not Recovered/Not Resolved]
  - Off label use [Unknown]

NARRATIVE: CASE EVENT DATE: 20220225
